FAERS Safety Report 21104305 (Version 1)
Quarter: 2022Q3

REPORT INFORMATION
  Report Type: Report from Study
  Country: DE (occurrence: DE)
  Receive Date: 20220720
  Receipt Date: 20220720
  Transmission Date: 20221027
  Serious: Yes (Life-Threatening, Hospitalization, Other)
  Sender: FDA-Public Use
  Company Number: DE-CELLTRION INC.-2022DE011295

PATIENT

DRUGS (8)
  1. RITUXIMAB [Suspect]
     Active Substance: RITUXIMAB
     Indication: Central nervous system lymphoma
     Route: 042
     Dates: start: 20201104, end: 20201107
  2. ETOPOSIDE [Suspect]
     Active Substance: ETOPOSIDE
     Indication: Central nervous system lymphoma
     Route: 042
     Dates: start: 20201104, end: 20201107
  3. IFOSFAMIDE [Suspect]
     Active Substance: IFOSFAMIDE
     Indication: Central nervous system lymphoma
     Route: 042
     Dates: start: 20201104, end: 20201107
  4. CARBOPLATIN [Suspect]
     Active Substance: CARBOPLATIN
     Indication: Central nervous system lymphoma
     Route: 042
     Dates: start: 20201104, end: 20201107
  5. DEXAMETHASONE [Suspect]
     Active Substance: DEXAMETHASONE
     Indication: Central nervous system lymphoma
     Route: 042
     Dates: start: 20201104, end: 20201107
  6. VENETOCLAX [Concomitant]
     Active Substance: VENETOCLAX
     Indication: Central nervous system lymphoma
     Dosage: 600 MILLIGRAM ON 06/OCT/2020, 27/OCT/2020 AND 03/NOV/2020, HE RECEIVED LAST DOSE OF VENETOCLAX PRIOR
     Route: 048
     Dates: start: 20200923
  7. OBINUTUZUMAB [Concomitant]
     Active Substance: OBINUTUZUMAB
     Indication: Central nervous system lymphoma
     Dosage: UNK
  8. OBINUTUZUMAB [Concomitant]
     Active Substance: OBINUTUZUMAB
     Dosage: 1000 MILLIGRAM (ON  01/OCT/2020 + 14/OCT/2020, HE RECEIVED THE LAST DOSE OF OBINUTUZUMAB 1000 MG PRI
     Route: 042
     Dates: start: 20200923

REACTIONS (5)
  - Sepsis [Recovered/Resolved]
  - Subarachnoid haemorrhage [Recovered/Resolved]
  - Fall [Unknown]
  - Pyrexia [Recovered/Resolved]
  - Asthenia [Recovered/Resolved]

NARRATIVE: CASE EVENT DATE: 20200930
